FAERS Safety Report 4333696-3 (Version None)
Quarter: 2004Q2

REPORT INFORMATION
  Report Type: 
  Country: None (occurrence: None)
  Receive Date: 20040406
  Receipt Date: 20040406
  Transmission Date: 20050107
  Serious: No
  Sender: FDA-Public Use
  Company Number: None

PATIENT
  Age: 6 Year
  Sex: Male

DRUGS (2)
  1. DROPERIDOL [Suspect]
     Indication: NAUSEA
     Dosage: 1.25 MG X 1
     Dates: start: 20040331
  2. DROPERIDOL [Suspect]
     Indication: VOMITING
     Dosage: 1.25 MG X 1
     Dates: start: 20040331

REACTIONS (2)
  - EXTRAPYRAMIDAL DISORDER [None]
  - HYPONATRAEMIA [None]
